FAERS Safety Report 8847053 (Version 1)
Quarter: 2012Q4

REPORT INFORMATION
  Report Type: Spontaneous
  Country: US (occurrence: None)
  Receive Date: 20121017
  Receipt Date: 20121017
  Transmission Date: 20130627
  Serious: Yes (Other)
  Sender: FDA-Public Use
  Company Number: None

PATIENT
  Age: 56 Year
  Sex: Female
  Weight: 63.5 kg

DRUGS (2)
  1. LIPITOR [Suspect]
     Indication: HIGH CHOLESTEROL
     Route: 048
     Dates: start: 20080101, end: 20121015
  2. ESTRADIOL [Concomitant]

REACTIONS (3)
  - Pain in extremity [None]
  - Rash generalised [None]
  - Pruritus [None]
